FAERS Safety Report 25832133 (Version 1)
Quarter: 2025Q3

REPORT INFORMATION
  Report Type: Spontaneous
  Country: US (occurrence: US)
  Receive Date: 20250922
  Receipt Date: 20250922
  Transmission Date: 20251020
  Serious: Yes (Other)
  Sender: PFIZER
  Company Number: US-PFIZER INC-202500183167

PATIENT
  Age: 50 Year
  Sex: Female

DRUGS (1)
  1. TALZENNA [Suspect]
     Active Substance: TALAZOPARIB TOSYLATE
     Dosage: 0.5 MG, 2X/DAY (HALF A PILL DAILY,1ST HALF- MORNING 2ND HALF-PM)

REACTIONS (2)
  - Renal impairment [Unknown]
  - Wrong technique in product usage process [Unknown]
